FAERS Safety Report 25537025 (Version 1)
Quarter: 2025Q3

REPORT INFORMATION
  Report Type: Other
  Country: CA (occurrence: CA)
  Receive Date: 20250710
  Receipt Date: 20250710
  Transmission Date: 20251021
  Serious: Yes (Life-Threatening, Other)
  Sender: TOLMAR
  Company Number: CA-Tolmar-TLM-2025-04476

PATIENT
  Age: 40 Year
  Sex: Female

DRUGS (72)
  1. LUPRON [Suspect]
     Active Substance: LEUPROLIDE ACETATE
     Indication: Product used for unknown indication
     Route: 058
  2. ELIGARD [Suspect]
     Active Substance: LEUPROLIDE ACETATE
     Indication: Product used for unknown indication
  3. FIRAZYR [Suspect]
     Active Substance: ICATIBANT ACETATE
     Indication: Hereditary angioedema with C1 esterase inhibitor deficiency
     Route: 065
  4. FIRAZYR [Suspect]
     Active Substance: ICATIBANT ACETATE
     Indication: Hereditary angioedema
     Route: 050
  5. FIRAZYR [Suspect]
     Active Substance: ICATIBANT ACETATE
     Route: 058
  6. FIRAZYR [Suspect]
     Active Substance: ICATIBANT ACETATE
     Route: 058
  7. FIRAZYR [Suspect]
     Active Substance: ICATIBANT ACETATE
     Route: 058
  8. FIRAZYR [Suspect]
     Active Substance: ICATIBANT ACETATE
     Route: 058
  9. FIRAZYR [Suspect]
     Active Substance: ICATIBANT ACETATE
     Route: 058
  10. FIRAZYR [Suspect]
     Active Substance: ICATIBANT ACETATE
     Route: 050
  11. FIRAZYR [Suspect]
     Active Substance: ICATIBANT ACETATE
     Route: 050
  12. FIRAZYR [Suspect]
     Active Substance: ICATIBANT ACETATE
     Route: 050
  13. FIRAZYR [Suspect]
     Active Substance: ICATIBANT ACETATE
     Route: 058
  14. FIRAZYR [Suspect]
     Active Substance: ICATIBANT ACETATE
     Route: 058
  15. FIRAZYR [Suspect]
     Active Substance: ICATIBANT ACETATE
     Route: 058
  16. FIRAZYR [Suspect]
     Active Substance: ICATIBANT ACETATE
     Route: 058
  17. FIRAZYR [Suspect]
     Active Substance: ICATIBANT ACETATE
     Route: 058
  18. FIRAZYR [Suspect]
     Active Substance: ICATIBANT ACETATE
     Route: 058
  19. FIRAZYR [Suspect]
     Active Substance: ICATIBANT ACETATE
     Route: 050
  20. FIRAZYR [Suspect]
     Active Substance: ICATIBANT ACETATE
     Route: 065
  21. FIRAZYR [Suspect]
     Active Substance: ICATIBANT ACETATE
     Route: 065
  22. FIRAZYR [Suspect]
     Active Substance: ICATIBANT ACETATE
     Route: 058
  23. FIRAZYR [Suspect]
     Active Substance: ICATIBANT ACETATE
     Route: 058
  24. FIRAZYR [Suspect]
     Active Substance: ICATIBANT ACETATE
     Route: 065
  25. FIRAZYR [Suspect]
     Active Substance: ICATIBANT ACETATE
     Route: 065
  26. FIRAZYR [Suspect]
     Active Substance: ICATIBANT ACETATE
     Route: 065
  27. FIRAZYR [Suspect]
     Active Substance: ICATIBANT ACETATE
     Route: 050
  28. FIRAZYR [Suspect]
     Active Substance: ICATIBANT ACETATE
     Route: 058
  29. FIRAZYR [Suspect]
     Active Substance: ICATIBANT ACETATE
     Route: 058
  30. FIRAZYR [Suspect]
     Active Substance: ICATIBANT ACETATE
     Route: 058
  31. FIRAZYR [Suspect]
     Active Substance: ICATIBANT ACETATE
     Route: 065
  32. FIRAZYR [Suspect]
     Active Substance: ICATIBANT ACETATE
     Route: 050
  33. FIRAZYR [Suspect]
     Active Substance: ICATIBANT ACETATE
     Route: 058
  34. FIRAZYR [Suspect]
     Active Substance: ICATIBANT ACETATE
     Route: 050
  35. FIRAZYR [Suspect]
     Active Substance: ICATIBANT ACETATE
     Route: 050
  36. FIRAZYR [Suspect]
     Active Substance: ICATIBANT ACETATE
     Route: 065
  37. FIRAZYR [Suspect]
     Active Substance: ICATIBANT ACETATE
     Route: 065
  38. FIRAZYR [Suspect]
     Active Substance: ICATIBANT ACETATE
     Route: 050
  39. FIRAZYR [Suspect]
     Active Substance: ICATIBANT ACETATE
     Route: 050
  40. FIRAZYR [Suspect]
     Active Substance: ICATIBANT ACETATE
     Route: 058
  41. FIRAZYR [Suspect]
     Active Substance: ICATIBANT ACETATE
     Route: 058
  42. FIRAZYR [Suspect]
     Active Substance: ICATIBANT ACETATE
     Route: 058
  43. FIRAZYR [Suspect]
     Active Substance: ICATIBANT ACETATE
     Route: 050
  44. FIRAZYR [Suspect]
     Active Substance: ICATIBANT ACETATE
     Route: 058
  45. FIRAZYR [Suspect]
     Active Substance: ICATIBANT ACETATE
     Route: 058
  46. FIRAZYR [Suspect]
     Active Substance: ICATIBANT ACETATE
     Route: 058
  47. FIRAZYR [Suspect]
     Active Substance: ICATIBANT ACETATE
     Route: 058
  48. FIRAZYR [Suspect]
     Active Substance: ICATIBANT ACETATE
     Route: 050
  49. FIRAZYR [Suspect]
     Active Substance: ICATIBANT ACETATE
     Route: 058
  50. FIRAZYR [Suspect]
     Active Substance: ICATIBANT ACETATE
     Route: 058
  51. FIRAZYR [Suspect]
     Active Substance: ICATIBANT ACETATE
     Route: 058
  52. FIRAZYR [Suspect]
     Active Substance: ICATIBANT ACETATE
     Route: 058
  53. TAKHZYRO [Suspect]
     Active Substance: LANADELUMAB-FLYO
     Indication: Hereditary angioedema with C1 esterase inhibitor deficiency
     Route: 058
  54. TAKHZYRO [Suspect]
     Active Substance: LANADELUMAB-FLYO
     Indication: Hereditary angioedema
     Route: 065
  55. TAKHZYRO [Suspect]
     Active Substance: LANADELUMAB-FLYO
     Route: 058
  56. TAKHZYRO [Suspect]
     Active Substance: LANADELUMAB-FLYO
     Route: 058
  57. BERINERT [Concomitant]
     Active Substance: HUMAN C1-ESTERASE INHIBITOR
     Indication: Product used for unknown indication
     Route: 065
  58. BERINERT [Concomitant]
     Active Substance: HUMAN C1-ESTERASE INHIBITOR
     Route: 065
  59. BERINERT [Concomitant]
     Active Substance: HUMAN C1-ESTERASE INHIBITOR
     Route: 065
  60. BERINERT [Concomitant]
     Active Substance: HUMAN C1-ESTERASE INHIBITOR
     Route: 058
  61. BERINERT [Concomitant]
     Active Substance: HUMAN C1-ESTERASE INHIBITOR
     Route: 065
  62. BERINERT [Concomitant]
     Active Substance: HUMAN C1-ESTERASE INHIBITOR
     Route: 065
  63. BERINERT [Concomitant]
     Active Substance: HUMAN C1-ESTERASE INHIBITOR
     Route: 065
  64. BERINERT [Concomitant]
     Active Substance: HUMAN C1-ESTERASE INHIBITOR
     Route: 065
  65. BERINERT [Concomitant]
     Active Substance: HUMAN C1-ESTERASE INHIBITOR
     Route: 065
  66. BERINERT [Concomitant]
     Active Substance: HUMAN C1-ESTERASE INHIBITOR
     Route: 065
  67. BERINERT [Concomitant]
     Active Substance: HUMAN C1-ESTERASE INHIBITOR
     Route: 058
  68. PREDNISONE [Concomitant]
     Active Substance: PREDNISONE
     Indication: Product used for unknown indication
     Route: 048
  69. VITAMIN B12 [Concomitant]
     Active Substance: CYANOCOBALAMIN
     Indication: Product used for unknown indication
     Route: 060
  70. VITAMIN B12 [Concomitant]
     Active Substance: CYANOCOBALAMIN
     Route: 050
  71. HIZENTRA [Concomitant]
     Active Substance: HUMAN IMMUNOGLOBULIN G
     Indication: Product used for unknown indication
     Route: 065
  72. HUMAN C1-ESTERASE INHIBITOR [Concomitant]
     Active Substance: HUMAN C1-ESTERASE INHIBITOR
     Indication: Product used for unknown indication
     Route: 058

REACTIONS (17)
  - Blood oestrogen increased [Not Recovered/Not Resolved]
  - COVID-19 [Not Recovered/Not Resolved]
  - Drug effect less than expected [Not Recovered/Not Resolved]
  - Fatigue [Not Recovered/Not Resolved]
  - Hereditary angioedema [Not Recovered/Not Resolved]
  - Injection site pain [Not Recovered/Not Resolved]
  - Injection site urticaria [Not Recovered/Not Resolved]
  - Insurance issue [Not Recovered/Not Resolved]
  - Malaise [Not Recovered/Not Resolved]
  - Ovarian cyst [Not Recovered/Not Resolved]
  - Poor venous access [Not Recovered/Not Resolved]
  - Post-traumatic stress disorder [Not Recovered/Not Resolved]
  - Product quality issue [Not Recovered/Not Resolved]
  - Product storage error [Not Recovered/Not Resolved]
  - Product use in unapproved indication [Not Recovered/Not Resolved]
  - Stress [Not Recovered/Not Resolved]
  - Suspected COVID-19 [Not Recovered/Not Resolved]
